FAERS Safety Report 20150472 (Version 1)
Quarter: 2021Q4

REPORT INFORMATION
  Report Type: Spontaneous
  Country: US (occurrence: None)
  Receive Date: 20211206
  Receipt Date: 20211206
  Transmission Date: 20220303
  Serious: Yes (Other)
  Sender: FDA-Public Use
  Company Number: US-Hikma Pharmaceuticals USA Inc.-US-H14001-21-05182

PATIENT
  Age: 58 Year
  Sex: Male

DRUGS (1)
  1. PREDNISONE [Suspect]
     Active Substance: PREDNISONE
     Indication: Evidence based treatment
     Dosage: UNKNOWN
     Route: 065

REACTIONS (3)
  - Histoplasmosis disseminated [Unknown]
  - Acute kidney injury [Unknown]
  - Hypercalcaemia [Unknown]
